FAERS Safety Report 22241901 (Version 8)
Quarter: 2025Q2

REPORT INFORMATION
  Report Type: Spontaneous
  Country: GB (occurrence: GB)
  Receive Date: 20230421
  Receipt Date: 20250512
  Transmission Date: 20250717
  Serious: Yes (Other)
  Sender: ORGANON
  Company Number: GB-AstraZeneca-2023A076434

PATIENT
  Age: 75 Year
  Sex: Female
  Weight: 84 kg

DRUGS (146)
  1. SIMVASTATIN [Suspect]
     Active Substance: SIMVASTATIN
     Dosage: 40 MILLIGRAM, QD (NIGHT)
     Route: 050
  2. SIMVASTATIN [Suspect]
     Active Substance: SIMVASTATIN
     Dosage: UNK UNK, QD
     Dates: start: 20230222
  3. ASTRAZENECA COVID-19 VACCINE [Suspect]
     Active Substance: AZD-1222
     Indication: COVID-19 immunisation
     Route: 030
     Dates: start: 20210622
  4. ASTRAZENECA COVID-19 VACCINE [Suspect]
     Active Substance: AZD-1222
     Route: 030
     Dates: start: 20210507
  5. ASTRAZENECA COVID-19 VACCINE [Suspect]
     Active Substance: AZD-1222
     Route: 030
     Dates: start: 20210517
  6. ASTRAZENECA COVID-19 VACCINE [Suspect]
     Active Substance: AZD-1222
     Route: 030
  7. ASTRAZENECA COVID-19 VACCINE [Suspect]
     Active Substance: AZD-1222
     Route: 030
     Dates: start: 20210312
  8. ASTRAZENECA COVID-19 VACCINE [Suspect]
     Active Substance: AZD-1222
     Route: 030
     Dates: start: 20211021
  9. ASTRAZENECA COVID-19 VACCINE [Suspect]
     Active Substance: AZD-1222
     Route: 030
     Dates: start: 20210605
  10. ASTRAZENECA COVID-19 VACCINE [Suspect]
     Active Substance: AZD-1222
     Route: 030
     Dates: start: 20211221
  11. ASTRAZENECA COVID-19 VACCINE [Suspect]
     Active Substance: AZD-1222
     Route: 030
     Dates: start: 20210312
  12. ASTRAZENECA COVID-19 VACCINE [Suspect]
     Active Substance: AZD-1222
     Route: 030
     Dates: start: 20210625
  13. ASTRAZENECA COVID-19 VACCINE [Suspect]
     Active Substance: AZD-1222
     Route: 030
     Dates: start: 20210208
  14. ASTRAZENECA COVID-19 VACCINE [Suspect]
     Active Substance: AZD-1222
     Route: 030
  15. ASTRAZENECA COVID-19 VACCINE [Suspect]
     Active Substance: AZD-1222
     Route: 030
     Dates: start: 20221214
  16. ASTRAZENECA COVID-19 VACCINE [Suspect]
     Active Substance: AZD-1222
     Route: 030
     Dates: start: 20210703
  17. ASTRAZENECA COVID-19 VACCINE [Suspect]
     Active Substance: AZD-1222
     Route: 050
  18. IMDUR [Suspect]
     Active Substance: ISOSORBIDE MONONITRATE
     Dosage: 50 MILLIGRAM, QD
     Route: 048
  19. LANSOPRAZOLE [Suspect]
     Active Substance: LANSOPRAZOLE
     Indication: Atrial fibrillation
     Dosage: 30 MILLIGRAM, 1 DOSE PER 1 D
     Route: 065
  20. LANSOPRAZOLE [Suspect]
     Active Substance: LANSOPRAZOLE
     Dosage: 40 MILLIGRAM, QD
     Route: 050
  21. LINAGLIPTIN [Suspect]
     Active Substance: LINAGLIPTIN
     Indication: Atrial fibrillation
     Dosage: 5 MILLIGRAM, QD
     Route: 065
  22. LINAGLIPTIN [Suspect]
     Active Substance: LINAGLIPTIN
     Dosage: 30 MILLIGRAM, QD
  23. LINAGLIPTIN [Suspect]
     Active Substance: LINAGLIPTIN
     Dosage: 2 MILLIGRAM, QD (MORNING)
     Route: 050
  24. LINAGLIPTIN [Suspect]
     Active Substance: LINAGLIPTIN
     Dosage: 5 MILLIGRAM, QD
  25. BISOPROLOL FUMARATE [Suspect]
     Active Substance: BISOPROLOL FUMARATE
     Indication: Cerebrovascular accident prophylaxis
     Dosage: 10 MILLIGRAM, QD
     Route: 065
  26. BISOPROLOL FUMARATE [Suspect]
     Active Substance: BISOPROLOL FUMARATE
     Indication: Reflux laryngitis
     Dosage: 5 MILLIGRAM, QD
     Dates: start: 20180207, end: 20180207
  27. BISOPROLOL FUMARATE [Suspect]
     Active Substance: BISOPROLOL FUMARATE
  28. CANDESARTAN CILEXETIL [Suspect]
     Active Substance: CANDESARTAN CILEXETIL
     Indication: Blood pressure abnormal
     Dosage: UNK UNK, QD
     Route: 065
     Dates: start: 20230222, end: 20230316
  29. CANDESARTAN CILEXETIL [Suspect]
     Active Substance: CANDESARTAN CILEXETIL
     Indication: Cerebrovascular accident prophylaxis
     Route: 065
  30. CANDESARTAN CILEXETIL [Suspect]
     Active Substance: CANDESARTAN CILEXETIL
     Indication: Product used for unknown indication
     Dosage: 10 MILLIGRAM, QD
     Route: 048
  31. CANDESARTAN CILEXETIL [Suspect]
     Active Substance: CANDESARTAN CILEXETIL
     Dates: start: 20220401, end: 20230316
  32. APIXABAN [Suspect]
     Active Substance: APIXABAN
     Indication: Cerebrovascular accident prophylaxis
     Dosage: 10 MILLIGRAM, QD
     Route: 065
     Dates: start: 20180207, end: 20230207
  33. APIXABAN [Suspect]
     Active Substance: APIXABAN
     Dosage: 125 MICROGRAM, QD
  34. LEVOTHYROXINE SODIUM [Suspect]
     Active Substance: LEVOTHYROXINE SODIUM
     Indication: Ill-defined disorder
     Dosage: 12 MICROGRAM, QD
     Route: 065
  35. LEVOTHYROXINE SODIUM [Suspect]
     Active Substance: LEVOTHYROXINE SODIUM
     Indication: Product used for unknown indication
     Dosage: 50 MICROGRAM, QD (MORNING)
  36. LEVOTHYROXINE SODIUM [Suspect]
     Active Substance: LEVOTHYROXINE SODIUM
     Dosage: 125 MICROGRAM, QD (MORNING)
  37. LEVOTHYROXINE SODIUM [Suspect]
     Active Substance: LEVOTHYROXINE SODIUM
  38. LEVOTHYROXINE SODIUM [Suspect]
     Active Substance: LEVOTHYROXINE SODIUM
     Dosage: 50 MICROGRAM, QD
  39. LEVOTHYROXINE SODIUM [Suspect]
     Active Substance: LEVOTHYROXINE SODIUM
     Dosage: 10 MILLIGRAM, QD
     Route: 050
  40. LEVOTHYROXINE SODIUM [Suspect]
     Active Substance: LEVOTHYROXINE SODIUM
     Dates: start: 20220725
  41. NAPROXEN [Suspect]
     Active Substance: NAPROXEN
     Indication: Cerebrovascular accident prophylaxis
     Route: 065
  42. NAPROXEN [Suspect]
     Active Substance: NAPROXEN
     Indication: Product used for unknown indication
     Dosage: 62.5 MICROGRAM, QD
  43. CANDESARTAN [Suspect]
     Active Substance: CANDESARTAN
     Dosage: UNK UNK, QD
     Route: 065
     Dates: start: 20220222
  44. CETIRIZINE HYDROCHLORIDE [Suspect]
     Active Substance: CETIRIZINE HYDROCHLORIDE
     Indication: Cerebrovascular accident prophylaxis
     Dosage: 10 MILLIGRAM, QD
     Route: 050
  45. CETIRIZINE HYDROCHLORIDE [Suspect]
     Active Substance: CETIRIZINE HYDROCHLORIDE
     Indication: Product used for unknown indication
     Dosage: 5 MILLIGRAM, QD
     Dates: start: 20180207, end: 20180207
  46. CETIRIZINE HYDROCHLORIDE [Suspect]
     Active Substance: CETIRIZINE HYDROCHLORIDE
  47. DAPAGLIFLOZIN [Suspect]
     Active Substance: DAPAGLIFLOZIN
     Indication: Ill-defined disorder
     Dosage: 10 MILLIGRAM, QD
     Route: 050
     Dates: start: 20230217
  48. DAPAGLIFLOZIN [Suspect]
     Active Substance: DAPAGLIFLOZIN
     Dates: start: 20220725
  49. DAPAGLIFLOZIN [Suspect]
     Active Substance: DAPAGLIFLOZIN
     Dosage: 5 MILLIGRAM, QD
  50. DIGOXIN [Suspect]
     Active Substance: DIGOXIN
     Indication: Cerebrovascular accident prophylaxis
     Dosage: 62.5 MICROGRAM, QD
     Route: 065
  51. DIGOXIN [Suspect]
     Active Substance: DIGOXIN
     Indication: Blood pressure abnormal
     Dates: start: 20230106
  52. DIGOXIN [Suspect]
     Active Substance: DIGOXIN
     Dosage: 63 MILLIGRAM, QD
  53. ESOMEPRAZOLE MAGNESIUM [Suspect]
     Active Substance: ESOMEPRAZOLE MAGNESIUM
     Indication: Reflux laryngitis
     Dosage: 40 MILLIGRAM (AFTER MEAL);
     Route: 065
  54. FELODIPINE [Suspect]
     Active Substance: FELODIPINE
     Indication: Blood pressure abnormal
     Route: 065
  55. FELODIPINE [Suspect]
     Active Substance: FELODIPINE
     Indication: Cerebrovascular accident prophylaxis
     Dates: start: 20230106
  56. FELODIPINE [Suspect]
     Active Substance: FELODIPINE
     Dosage: 50 MILLIGRAM, QD
  57. FELODIPINE [Suspect]
     Active Substance: FELODIPINE
     Dosage: 10 MILLIGRAM, QD
     Dates: start: 20230207, end: 20230207
  58. HYDROCHLOROTHIAZIDE [Suspect]
     Active Substance: HYDROCHLOROTHIAZIDE
     Dosage: 2 MILLIGRAM, QD (MORNING)
     Route: 050
  59. ISOSORBIDE DINITRATE [Suspect]
     Active Substance: ISOSORBIDE DINITRATE
     Dosage: 50 MILLIGRAM, QD
     Route: 048
  60. ISOSORBIDE MONONITRATE [Suspect]
     Active Substance: ISOSORBIDE MONONITRATE
     Route: 048
  61. ISOSORBIDE MONONITRATE [Suspect]
     Active Substance: ISOSORBIDE MONONITRATE
     Dosage: 50 MILLIGRAM, QD
  62. ISOSORBIDE MONONITRATE [Suspect]
     Active Substance: ISOSORBIDE MONONITRATE
     Dates: start: 20220401, end: 20230316
  63. ESOMEPRAZOLE SODIUM [Suspect]
     Active Substance: ESOMEPRAZOLE SODIUM
     Dosage: 10 MILLIGRAM, QD
     Route: 050
     Dates: start: 20230217
  64. LINAGLIPTIN [Suspect]
     Active Substance: LINAGLIPTIN
     Indication: Product used for unknown indication
     Dosage: 5 MILLIGRAM, QD
  65. SIMVASTATIN [Concomitant]
     Active Substance: SIMVASTATIN
     Dosage: UNK, UNK, QD
     Dates: start: 20221123
  66. SIMVASTATIN [Concomitant]
     Active Substance: SIMVASTATIN
  67. SIMVASTATIN [Concomitant]
     Active Substance: SIMVASTATIN
     Dates: start: 20230227, end: 20230228
  68. LOSARTAN POTASSIUM [Concomitant]
     Active Substance: LOSARTAN POTASSIUM
     Dosage: UNK UNK, QD
     Dates: start: 20210628
  69. AMITRIPTYLINE HYDROCHLORIDE [Concomitant]
     Active Substance: AMITRIPTYLINE HYDROCHLORIDE
     Dates: start: 20221123
  70. BENDROFLUMETHIAZIDE [Concomitant]
     Active Substance: BENDROFLUMETHIAZIDE
     Dosage: UNK UNK, QD
     Dates: start: 20221123
  71. BENDROFLUMETHIAZIDE [Concomitant]
     Active Substance: BENDROFLUMETHIAZIDE
     Dates: start: 20221111
  72. BISOPROLOL [Concomitant]
     Active Substance: BISOPROLOL
     Dates: start: 20221205
  73. BISOPROLOL [Concomitant]
     Active Substance: BISOPROLOL
     Dosage: UNK UNK, QD
     Dates: start: 20230301
  74. BISOPROLOL [Concomitant]
     Active Substance: BISOPROLOL
     Dates: start: 20210317, end: 20230217
  75. ESTRIOL [Concomitant]
     Active Substance: ESTRIOL
     Dosage: UNK UNK, QD
     Dates: start: 20221123
  76. FOSFOMYCIN [Concomitant]
     Active Substance: FOSFOMYCIN
     Dates: start: 20230227, end: 20230228
  77. FOSFOMYCIN [Concomitant]
     Active Substance: FOSFOMYCIN
     Dates: start: 20221205
  78. LANSOPRAZOLE [Concomitant]
     Active Substance: LANSOPRAZOLE
     Indication: Ill-defined disorder
     Dosage: UNK UNK, QD
     Dates: start: 20210628
  79. LANSOPRAZOLE [Concomitant]
     Active Substance: LANSOPRAZOLE
  80. OMEPRAZOLE [Concomitant]
     Active Substance: OMEPRAZOLE
     Dosage: UNK UNK, QD
     Dates: start: 20221123
  81. OMEPRAZOLE [Concomitant]
     Active Substance: OMEPRAZOLE
     Dates: start: 20221205
  82. OMEPRAZOLE [Concomitant]
     Active Substance: OMEPRAZOLE
     Dates: start: 20221123
  83. OMEPRAZOLE [Concomitant]
     Active Substance: OMEPRAZOLE
     Dates: start: 20220525, end: 20230217
  84. INSULIN GLARGINE [Concomitant]
     Active Substance: INSULIN GLARGINE
     Dates: start: 20211013, end: 20230106
  85. ALBUTEROL SULFATE [Concomitant]
     Active Substance: ALBUTEROL SULFATE
     Dates: start: 20220818
  86. AMITRIPTYLINE HYDROCHLORIDE [Concomitant]
     Active Substance: AMITRIPTYLINE HYDROCHLORIDE
     Dates: start: 20221123
  87. AMITRIPTYLINE HYDROCHLORIDE [Concomitant]
     Active Substance: AMITRIPTYLINE HYDROCHLORIDE
     Dates: start: 20221205
  88. ASPIRIN [Concomitant]
     Active Substance: ASPIRIN
  89. AMLODIPINE [Concomitant]
     Active Substance: AMLODIPINE BESYLATE
  90. AMLODIPINE [Concomitant]
     Active Substance: AMLODIPINE BESYLATE
     Dates: start: 20221123
  91. ATORVASTATIN [Concomitant]
     Active Substance: ATORVASTATIN
  92. BUMETANIDE [Concomitant]
     Active Substance: BUMETANIDE
     Dates: start: 20220525, end: 20230217
  93. BUMETANIDE [Concomitant]
     Active Substance: BUMETANIDE
     Dates: start: 20230318
  94. CHLORAMPHENICOL [Concomitant]
     Active Substance: CHLORAMPHENICOL
     Dates: start: 20230318
  95. CITALOPRAM [Concomitant]
     Active Substance: CITALOPRAM
     Indication: Diabetes mellitus
     Dates: start: 20230318
  96. CITALOPRAM [Concomitant]
     Active Substance: CITALOPRAM
  97. COMIRNATY [Concomitant]
  98. DAPAGLIFLOZIN [Concomitant]
     Active Substance: DAPAGLIFLOZIN
     Dates: start: 20220512
  99. DOCUSATE SODIUM [Concomitant]
     Active Substance: DOCUSATE SODIUM
  100. DOCUSATE SODIUM [Concomitant]
     Active Substance: DOCUSATE SODIUM
     Dates: start: 20230301
  101. DOXAZOSIN [Concomitant]
     Active Substance: DOXAZOSIN MESYLATE
  102. DOXAZOSIN [Concomitant]
     Active Substance: DOXAZOSIN MESYLATE
     Dates: start: 20230126
  103. EDOXABAN [Concomitant]
     Active Substance: EDOXABAN
     Dates: start: 20221205
  104. FEXOFENADINE [Concomitant]
     Active Substance: FEXOFENADINE HYDROCHLORIDE
     Dates: start: 20230317
  105. FEXOFENADINE [Concomitant]
     Active Substance: FEXOFENADINE HYDROCHLORIDE
     Dates: start: 20220512
  106. FLUTICASONE PROPIONATE [Concomitant]
     Active Substance: FLUTICASONE PROPIONATE
  107. GABAPENTIN [Concomitant]
     Active Substance: GABAPENTIN
  108. ALGINIC ACID\ALUMINUM HYDROXIDE\MAGNESIUM TRISILICATE [Concomitant]
     Active Substance: ALGINIC ACID\ALUMINUM HYDROXIDE\MAGNESIUM TRISILICATE
  109. GLICLAZIDE [Concomitant]
     Active Substance: GLICLAZIDE
  110. GLICLAZIDE [Concomitant]
     Active Substance: GLICLAZIDE
     Dates: start: 20221104
  111. NITROGLYCERIN [Concomitant]
     Active Substance: NITROGLYCERIN
  112. LACTULOSE [Concomitant]
     Active Substance: LACTULOSE
  113. LACTULOSE [Concomitant]
     Active Substance: LACTULOSE
     Dates: start: 20221104
  114. LACTULOSE [Concomitant]
     Active Substance: LACTULOSE
     Dates: start: 20230105
  115. LACTULOSE [Concomitant]
     Active Substance: LACTULOSE
     Dates: start: 20221205
  116. POLYETHYLENE GLYCOL 3350\POTASSIUM CHLORIDE\SODIUM BICARBONATE\SODIUM [Concomitant]
     Active Substance: POLYETHYLENE GLYCOL 3350\POTASSIUM CHLORIDE\SODIUM BICARBONATE\SODIUM CHLORIDE
  117. LEVOTHYROXINE SODIUM [Concomitant]
     Active Substance: LEVOTHYROXINE SODIUM
     Indication: Ill-defined disorder
  118. LEVOTHYROXINE SODIUM [Concomitant]
     Active Substance: LEVOTHYROXINE SODIUM
     Dates: start: 20211217
  119. LEVOTHYROXINE SODIUM [Concomitant]
     Active Substance: LEVOTHYROXINE SODIUM
     Dosage: UNK UNK, QD
     Dates: start: 20210628
  120. METFORMIN [Concomitant]
     Active Substance: METFORMIN HYDROCHLORIDE
  121. METFORMIN [Concomitant]
     Active Substance: METFORMIN HYDROCHLORIDE
  122. MOVELAT [ADRENAL CORTICAL EXTRACT;MUCOPOLYSACCHARIDE POLYSULFURIC ACID [Concomitant]
  123. OLANZAPINE [Concomitant]
     Active Substance: OLANZAPINE
  124. ACETAMINOPHEN [Concomitant]
     Active Substance: ACETAMINOPHEN
  125. PREDNISOLONE [Concomitant]
     Active Substance: PREDNISOLONE
  126. RAMIPRIL [Concomitant]
     Active Substance: RAMIPRIL
  127. RAMIPRIL [Concomitant]
     Active Substance: RAMIPRIL
     Dates: start: 20221205
  128. RAMIPRIL [Concomitant]
     Active Substance: RAMIPRIL
     Dates: start: 20230317
  129. RAMIPRIL [Concomitant]
     Active Substance: RAMIPRIL
     Dates: start: 20230111, end: 20230123
  130. ROSUVASTATIN [Concomitant]
     Active Substance: ROSUVASTATIN
     Dates: start: 20210317, end: 20230217
  131. ROSUVASTATIN [Concomitant]
     Active Substance: ROSUVASTATIN
     Dates: start: 20221123
  132. SENNA LEAF [Concomitant]
     Active Substance: SENNA LEAF
  133. SILDENAFIL [Concomitant]
     Active Substance: SILDENAFIL
  134. SILDENAFIL [Concomitant]
     Active Substance: SILDENAFIL
  135. SITAGLIPTIN [Concomitant]
     Active Substance: SITAGLIPTIN
  136. SITAGLIPTIN [Concomitant]
     Active Substance: SITAGLIPTIN
  137. SITAGLIPTIN [Concomitant]
     Active Substance: SITAGLIPTIN
     Dates: start: 20221123
  138. SOTALOL [Concomitant]
     Active Substance: SOTALOL
  139. SOTALOL [Concomitant]
     Active Substance: SOTALOL
     Dates: start: 20221111
  140. SPIRONOLACTONE [Concomitant]
     Active Substance: SPIRONOLACTONE
  141. SPIRONOLACTONE [Concomitant]
     Active Substance: SPIRONOLACTONE
     Dates: start: 20230105
  142. WARFARIN SODIUM [Concomitant]
     Active Substance: WARFARIN SODIUM
  143. ACETAMINOPHEN\CODEINE PHOSPHATE [Concomitant]
     Active Substance: ACETAMINOPHEN\CODEINE PHOSPHATE
  144. PARAFFIN [Concomitant]
     Active Substance: PARAFFIN
  145. ASTRAZENECA COVID-19 VACCINE [Concomitant]
     Active Substance: AZD-1222
     Dates: start: 20210601, end: 20220512
  146. INSULIN GLARGINE [Concomitant]
     Active Substance: INSULIN GLARGINE
     Dates: start: 20211003, end: 20230106

REACTIONS (80)
  - Back pain [Recovered/Resolved]
  - Malaise [Unknown]
  - Hyperhidrosis [Unknown]
  - Tinnitus [Not Recovered/Not Resolved]
  - Angioedema [Recovered/Resolved]
  - Pruritus [Recovering/Resolving]
  - Tachycardia [Unknown]
  - Muscular weakness [Unknown]
  - Anxiety [Not Recovered/Not Resolved]
  - Visual impairment [Recovering/Resolving]
  - Fatigue [Recovered/Resolved]
  - Malaise [Unknown]
  - Pericarditis [Not Recovered/Not Resolved]
  - Abdominal discomfort [Recovered/Resolved]
  - Amnesia [Not Recovered/Not Resolved]
  - Myocardial infarction [Recovered/Resolved]
  - Alopecia [Recovered/Resolved]
  - Abdominal pain upper [Unknown]
  - Blood glucose increased [Unknown]
  - Pain [Recovered/Resolved]
  - Pyrexia [Unknown]
  - Memory impairment [Recovering/Resolving]
  - Drug abuse [Unknown]
  - Anosmia [Recovered/Resolved]
  - Heart rate increased [Unknown]
  - COVID-19 [Recovered/Resolved]
  - Dehydration [Unknown]
  - Diplopia [Recovering/Resolving]
  - Lip swelling [Recovering/Resolving]
  - Dry skin [Not Recovered/Not Resolved]
  - Vomiting [Recovered/Resolved]
  - Cardiospasm [Not Recovered/Not Resolved]
  - Ventricular tachycardia [Not Recovered/Not Resolved]
  - Subarachnoid haemorrhage [Recovered/Resolved]
  - Palmoplantar keratoderma [Not Recovered/Not Resolved]
  - Dyspnoea [Unknown]
  - Eye pruritus [Recovered/Resolved]
  - Transient ischaemic attack [Recovered/Resolved]
  - Hallucination [Recovered/Resolved]
  - Feeling abnormal [Unknown]
  - Dizziness [Recovered/Resolved]
  - Immunisation [Recovered/Resolved]
  - Palmoplantar keratoderma [Not Recovered/Not Resolved]
  - Nausea [Recovered/Resolved]
  - Blindness [Not Recovered/Not Resolved]
  - Facial pain [Recovered/Resolved]
  - Abdominal pain upper [Not Recovered/Not Resolved]
  - Malaise [Unknown]
  - Pruritus genital [Recovered/Resolved]
  - Cognitive disorder [Recovered/Resolved]
  - Vasculitis [Not Recovered/Not Resolved]
  - Headache [Not Recovered/Not Resolved]
  - Carotid artery occlusion [Recovered/Resolved]
  - Tension headache [Not Recovered/Not Resolved]
  - Intentional product misuse [Unknown]
  - Muscle twitching [Unknown]
  - Chest pain [Unknown]
  - Sleep terror [Recovered/Resolved]
  - Diarrhoea [Recovered/Resolved]
  - Arthralgia [Recovered/Resolved]
  - Abdominal discomfort [Unknown]
  - Pain of skin [Recovered/Resolved]
  - Disturbance in attention [Recovered/Resolved]
  - Abdominal discomfort [Unknown]
  - Peripheral swelling [Recovered/Resolved]
  - Atrial tachycardia [Not Recovered/Not Resolved]
  - Blood glucose increased [Unknown]
  - Abdominal pain upper [Unknown]
  - Nausea [Recovered/Resolved]
  - Rash papular [Recovering/Resolving]
  - Insomnia [Unknown]
  - Palpitations [Unknown]
  - Migraine [Not Recovered/Not Resolved]
  - COVID-19 [Recovered/Resolved with Sequelae]
  - Sleep terror [Recovered/Resolved]
  - Dehydration [Unknown]
  - Hyperhidrosis [Unknown]
  - Off label use [Recovered/Resolved]
  - Off label use [Recovered/Resolved with Sequelae]
  - Intentional product use issue [Unknown]

NARRATIVE: CASE EVENT DATE: 20180207
